FAERS Safety Report 9157843 (Version 1)
Quarter: 2013Q1

REPORT INFORMATION
  Report Type: Spontaneous
  Country: DE (occurrence: DE)
  Receive Date: 20130312
  Receipt Date: 20130312
  Transmission Date: 20140127
  Serious: Yes (Disabling, Other)
  Sender: FDA-Public Use
  Company Number: DE-009507513-1303DEU004353

PATIENT
  Age: 32 Year
  Sex: Male

DRUGS (3)
  1. TEMOZOLOMIDE [Suspect]
     Indication: MEDULLOBLASTOMA
     Dosage: 180 MG, QD
     Route: 048
     Dates: start: 201111
  2. DEPOCYTE [Concomitant]
     Indication: MEDULLOBLASTOMA
     Dosage: UNK
     Route: 037
     Dates: start: 201111, end: 201206
  3. METHOTREXATE [Concomitant]
     Indication: MEDULLOBLASTOMA
     Dosage: UNK
     Dates: start: 201207, end: 201212

REACTIONS (1)
  - Hypoacusis [Recovered/Resolved with Sequelae]
